FAERS Safety Report 23526424 (Version 2)
Quarter: 2024Q1

REPORT INFORMATION
  Report Type: Spontaneous
  Country: US (occurrence: US)
  Receive Date: 20240215
  Receipt Date: 20240215
  Transmission Date: 20240410
  Serious: Yes (Other)
  Sender: FDA-Public Use
  Company Number: US-DAIICHI SANKYO, INC.-DSJ-2024-106856

PATIENT
  Age: 57 Year
  Sex: Female

DRUGS (8)
  1. TRASTUZUMAB DERUXTECAN [Suspect]
     Active Substance: TRASTUZUMAB DERUXTECAN
     Indication: Hormone receptor negative HER2 positive breast cancer
     Dosage: UNK
     Route: 065
  2. TRASTUZUMAB DERUXTECAN [Suspect]
     Active Substance: TRASTUZUMAB DERUXTECAN
     Indication: Breast cancer metastatic
  3. CAPECITABINE [Suspect]
     Active Substance: CAPECITABINE
     Indication: Hormone receptor negative HER2 positive breast cancer
     Dosage: UNK
     Route: 065
  4. CAPECITABINE [Suspect]
     Active Substance: CAPECITABINE
     Indication: Breast cancer metastatic
  5. DENOSUMAB [Suspect]
     Active Substance: DENOSUMAB
     Indication: Hormone receptor negative HER2 positive breast cancer
     Dosage: UNK
     Route: 065
  6. DENOSUMAB [Suspect]
     Active Substance: DENOSUMAB
     Indication: Breast cancer metastatic
  7. TUCATINIB [Suspect]
     Active Substance: TUCATINIB
     Indication: Hormone receptor negative HER2 positive breast cancer
     Dosage: UNK
     Route: 065
  8. TUCATINIB [Suspect]
     Active Substance: TUCATINIB
     Indication: Breast cancer metastatic

REACTIONS (2)
  - Papillary thyroid cancer [Unknown]
  - Mouth ulceration [Recovering/Resolving]
